FAERS Safety Report 21788375 (Version 1)
Quarter: 2022Q4

REPORT INFORMATION
  Report Type: Spontaneous
  Country: ES (occurrence: ES)
  Receive Date: 20221228
  Receipt Date: 20221228
  Transmission Date: 20230112
  Serious: Yes (Hospitalization, Other)
  Sender: FDA-Public Use
  Company Number: ES-SUN PHARMACEUTICAL INDUSTRIES LTD-2022RR-369872

PATIENT
  Sex: Female

DRUGS (1)
  1. SERTRALINE [Suspect]
     Active Substance: SERTRALINE HYDROCHLORIDE
     Indication: Product used for unknown indication
     Dosage: 50 MILLIGRAM, 9 TABLETS
     Route: 048

REACTIONS (3)
  - Tremor [Recovered/Resolved]
  - Vomiting [Recovered/Resolved]
  - Overdose [Unknown]

NARRATIVE: CASE EVENT DATE: 20221213
